FAERS Safety Report 10603077 (Version 3)
Quarter: 2014Q4

REPORT INFORMATION
  Report Type: Report from Study
  Country: NL (occurrence: NL)
  Receive Date: 20141124
  Receipt Date: 20141217
  Transmission Date: 20150529
  Serious: Yes (Other)
  Sender: FDA-Public Use
  Company Number: NL-ABBVIE-14P-114-1286447-00

PATIENT
  Age: 38 Year
  Sex: Female

DRUGS (2)
  1. LUCRIN DEPOT (LEUPRORELINE) [Suspect]
     Active Substance: LEUPROLIDE ACETATE
     Indication: BREAST CANCER FEMALE
     Route: 058
     Dates: start: 20130503
  2. TAMOXIFEN [Concomitant]
     Active Substance: TAMOXIFEN
     Indication: BREAST CANCER FEMALE
     Route: 048

REACTIONS (4)
  - Incision site complication [Recovering/Resolving]
  - Umbilicoplasty [Recovering/Resolving]
  - Injection site haematoma [Recovered/Resolved]
  - Breast reconstruction [Recovering/Resolving]

NARRATIVE: CASE EVENT DATE: 201410
